FAERS Safety Report 6919422-X (Version None)
Quarter: 2010Q3

REPORT INFORMATION
  Report Type: 
  Country: None (occurrence: None)
  Receive Date: 20100811
  Receipt Date: 20100810
  Transmission Date: 20110219
  Serious: Yes (Other)
  Sender: FDA-Public Use
  Company Number: B0383231A

PATIENT
  Age: 36 Year
  Sex: Male

DRUGS (1)
  1. HEPTODIN [Suspect]
     Indication: HEPATITIS B
     Dosage: 100MG PER DAY
     Route: 048
     Dates: start: 19991001

REACTIONS (4)
  - ABDOMINAL PAIN [None]
  - CALCULUS URETERIC [None]
  - HAEMATURIA [None]
  - NEPHROLITHIASIS [None]
